FAERS Safety Report 7283841-5 (Version None)
Quarter: 2011Q1

REPORT INFORMATION
  Report Type: 
  Country: None (occurrence: None)
  Receive Date: 20110126
  Receipt Date: 20101231
  Transmission Date: 20110831
  Serious: Yes (Death)
  Sender: FDA-Public Use
  Company Number: AUR-APL-2011-00051

PATIENT
  Age: 31 Year
  Sex: Female

DRUGS (3)
  1. METHADONE [Suspect]
     Dosage: ORAL
     Route: 048
  2. CAFFEINE [Suspect]
     Dosage: ORAL
     Route: 048
  3. CITALOPRAM [Suspect]
     Dosage: ORAL
     Route: 048

REACTIONS (2)
  - CARDIAC ARREST [None]
  - RESPIRATORY ARREST [None]
